FAERS Safety Report 8851387 (Version 1)
Quarter: 2012Q4

REPORT INFORMATION
  Report Type: 
  Country: US (occurrence: US)
  Receive Date: 20121022
  Receipt Date: 20121022
  Transmission Date: 20130627
  Serious: Yes (Other)
  Sender: FDA-Public Use
  Company Number: US-ROCHE-1140548

PATIENT
  Sex: Female

DRUGS (3)
  1. PROTROPIN [Suspect]
     Indication: TURNER^S SYNDROME
     Route: 058
  2. PROTROPIN [Suspect]
     Route: 058
  3. PROTROPIN [Suspect]
     Route: 058

REACTIONS (1)
  - Ear infection [Unknown]
